FAERS Safety Report 11051517 (Version 1)
Quarter: 2015Q2

REPORT INFORMATION
  Report Type: Spontaneous
  Country: US (occurrence: US)
  Receive Date: 20150421
  Receipt Date: 20150421
  Transmission Date: 20150821
  Serious: No
  Sender: FDA-Public Use
  Company Number: US-PFIZER INC-2015133306

PATIENT
  Sex: Female

DRUGS (1)
  1. DUAVEE [Suspect]
     Active Substance: BAZEDOXIFENE ACETATE\ESTROGENS, CONJUGATED
     Dosage: 1 DF (BAZEDOXIFENE 0.45/CONJUGATED ESTROGENS 20), 1X/DAY
     Route: 048
     Dates: end: 20150409

REACTIONS (1)
  - Oedema peripheral [Unknown]
